FAERS Safety Report 4360991-4 (Version None)
Quarter: 2004Q2

REPORT INFORMATION
  Report Type: 
  Country: None (occurrence: None)
  Receive Date: 20040517
  Receipt Date: 20040506
  Transmission Date: 20050107
  Serious: Yes (Hospitalization)
  Sender: FDA-Public Use
  Company Number: 2004PK00819

PATIENT
  Age: 75 Year
  Sex: Female
  Weight: 55 kg

DRUGS (3)
  1. IRESSA [Suspect]
     Indication: TRANSITIONAL CELL CARCINOMA
     Dosage: 500 MG DAILY PO
     Route: 048
     Dates: start: 20040116
  2. GEMCITABINE [Suspect]
     Indication: TRANSITIONAL CELL CARCINOMA
     Dosage: 2150 MG/M2 ONCE
     Dates: start: 20040126, end: 20040126
  3. CISPLATIN [Suspect]
     Indication: TRANSITIONAL CELL CARCINOMA
     Dosage: 122 MG/M2
     Dates: start: 20040116, end: 20040116

REACTIONS (1)
  - THROMBOSIS [None]
